FAERS Safety Report 6604997-0 (Version None)
Quarter: 2010Q1

REPORT INFORMATION
  Report Type: 
  Country: None (occurrence: None)
  Receive Date: 20100226
  Receipt Date: 20100218
  Transmission Date: 20100710
  Serious: Yes (Hospitalization)
  Sender: FDA-Public Use
  Company Number: JP-SANOFI-AVENTIS-2010SA009840

PATIENT
  Age: 60 Year
  Sex: Male

DRUGS (5)
  1. ELPLAT [Suspect]
     Indication: RECTAL CANCER
     Route: 041
  2. AVASTIN [Suspect]
     Indication: RECTAL CANCER
     Route: 041
  3. CALCIUM LEVOFOLINATE [Suspect]
     Indication: RECTAL CANCER
     Route: 041
  4. 5-FU [Suspect]
     Indication: RECTAL CANCER
     Route: 040
  5. 5-FU [Suspect]
     Route: 041

REACTIONS (1)
  - RECTAL PERFORATION [None]
